FAERS Safety Report 6102315-8 (Version None)
Quarter: 2009Q1

REPORT INFORMATION
  Report Type: 
  Country: None (occurrence: None)
  Receive Date: 20090227
  Receipt Date: 20080811
  Transmission Date: 20090719
  Serious: Yes (Hospitalization)
  Sender: FDA-Public Use
  Company Number: 580347

PATIENT
  Age: 34 Year
  Sex: Female

DRUGS (2)
  1. ISOTRETINOIN [Suspect]
     Indication: ACNE
     Dosage: 40 MG DAILY ORAL
     Route: 048
     Dates: start: 20071127, end: 20080607
  2. SEASONALE (ETHINYL ESTRADIOL/LEVONORGESTREL) [Concomitant]

REACTIONS (1)
  - COLITIS ULCERATIVE [None]
